FAERS Safety Report 4506746-9 (Version None)
Quarter: 2004Q4

REPORT INFORMATION
  Report Type: 
  Country: None (occurrence: None)
  Receive Date: 20041117
  Receipt Date: 20041101
  Transmission Date: 20050328
  Serious: Yes (Hospitalization)
  Sender: FDA-Public Use
  Company Number: 207212

PATIENT
  Age: 7 Year
  Sex: Male

DRUGS (1)
  1. AVONEX [Suspect]
     Dosage: 15 MCG QW IM
     Route: 030
     Dates: start: 20041023

REACTIONS (1)
  - HOSPITALISATION [None]
